FAERS Safety Report 4569365-4 (Version None)
Quarter: 2005Q1

REPORT INFORMATION
  Report Type: 
  Country: None (occurrence: None)
  Receive Date: 20050203
  Receipt Date: 20040204
  Transmission Date: 20050727
  Serious: Yes (Death, Other)
  Sender: FDA-Public Use
  Company Number: PHHO2004JP01971

PATIENT
  Age: 57 Year
  Sex: Female
  Weight: 48 kg

DRUGS (9)
  1. GLIVEC [Suspect]
     Indication: GASTROINTESTINAL STROMAL TUMOUR
     Dosage: 400 MG, QD
     Route: 048
     Dates: start: 20031106, end: 20031120
  2. GLIVEC [Suspect]
     Dosage: UNK, NO TREATMENT
     Dates: start: 20031121, end: 20031201
  3. GLIVEC [Suspect]
     Dosage: 300 MG, QD
     Route: 048
     Dates: start: 20031202, end: 20031221
  4. GLIVEC [Suspect]
     Dosage: UNK, NO TREATMENT
     Dates: start: 20031222, end: 20031225
  5. GLIVEC [Suspect]
     Dosage: 300 MG, QD
     Route: 048
     Dates: start: 20031226, end: 20031228
  6. GLIVEC [Suspect]
     Dosage: UNK, NO TREATMENT
     Dates: start: 20031229, end: 20040108
  7. GLIVEC [Suspect]
     Dosage: 300 MG, QD
     Route: 048
     Dates: start: 20040109, end: 20040117
  8. GLIVEC [Suspect]
     Dosage: UNK, NO TREATMENT
     Dates: start: 20040118, end: 20040215
  9. GLIVEC [Suspect]
     Dosage: 200 MG, QD
     Route: 048
     Dates: start: 20040216, end: 20040312

REACTIONS (8)
  - HYPERAMMONAEMIA [None]
  - MALAISE [None]
  - MALIGNANT NEOPLASM PROGRESSION [None]
  - OEDEMA PERIPHERAL [None]
  - PLEURAL EFFUSION [None]
  - TRANSAMINASES INCREASED [None]
  - VOMITING [None]
  - WHITE BLOOD CELL COUNT DECREASED [None]
